FAERS Safety Report 9003083 (Version 1)
Quarter: 2013Q1

REPORT INFORMATION
  Report Type: Report from Study
  Country: GB (occurrence: GB)
  Receive Date: 20130108
  Receipt Date: 20130108
  Transmission Date: 20140127
  Serious: Yes (Hospitalization)
  Sender: FDA-Public Use
  Company Number: GB-ROCHE-1174990

PATIENT
  Age: 46 Year
  Sex: Female

DRUGS (3)
  1. CAPECITABINE [Suspect]
     Indication: COLORECTAL CANCER
     Route: 065
     Dates: start: 20061030
  2. OXALIPLATIN [Suspect]
     Indication: COLORECTAL CANCER
     Route: 065
     Dates: start: 20061030
  3. CETUXIMAB [Suspect]
     Indication: COLORECTAL CANCER
     Route: 065
     Dates: start: 20061030

REACTIONS (7)
  - Arrhythmia supraventricular [Recovered/Resolved]
  - Dyspnoea [Recovered/Resolved]
  - Dizziness [Recovered/Resolved]
  - Nausea [Recovered/Resolved]
  - Vomiting [Recovered/Resolved]
  - Pneumonia [Recovered/Resolved]
  - Sinus tachycardia [Recovered/Resolved]
